FAERS Safety Report 25385416 (Version 1)
Quarter: 2025Q2

REPORT INFORMATION
  Report Type: Spontaneous
  Country: US (occurrence: None)
  Receive Date: 20250601
  Receipt Date: 20250601
  Transmission Date: 20250716
  Serious: Yes (Disabling)
  Sender: FDA-CTU
  Company Number: None

PATIENT
  Age: 84 Year
  Sex: Female
  Weight: 56.25 kg

DRUGS (1)
  1. CLONAZEPAM [Suspect]
     Active Substance: CLONAZEPAM
     Indication: Restless legs syndrome
     Dosage: OTHER QUANTITY : 2 TABLET(S);?FREQUENCY : AT BEDTIME;?
     Route: 048

REACTIONS (19)
  - Dry eye [None]
  - Vision blurred [None]
  - Anal incontinence [None]
  - Insomnia [None]
  - Chronic obstructive pulmonary disease [None]
  - Anxiety [None]
  - Blood pressure increased [None]
  - Chronic kidney disease [None]
  - Affect lability [None]
  - Irritability [None]
  - Personal relationship issue [None]
  - Memory impairment [None]
  - Amnesia [None]
  - Aphasia [None]
  - Myalgia [None]
  - Arthralgia [None]
  - Drug tolerance [None]
  - Withdrawal syndrome [None]
  - Brain injury [None]

NARRATIVE: CASE EVENT DATE: 19900601
